FAERS Safety Report 14650695 (Version 2)
Quarter: 2018Q1

REPORT INFORMATION
  Report Type: Report from Study
  Country: DE (occurrence: DE)
  Receive Date: 20180316
  Receipt Date: 20180322
  Transmission Date: 20180509
  Serious: Yes (Other)
  Sender: FDA-Public Use
  Company Number: DE-TEVA-2018-DE-868988

PATIENT
  Age: 41 Year
  Sex: Male

DRUGS (2)
  1. IBUPROFEN. [Suspect]
     Active Substance: IBUPROFEN
     Dosage: 2400 MILLIGRAM DAILY; IN LAST MONTH 3X800 MG/DAY
     Route: 065
  2. IBUPROFEN. [Suspect]
     Active Substance: IBUPROFEN
     Indication: BACK PAIN
     Dosage: FOR 6 MONTHS (INITIAL DOSE UNKNOWN) AT IRREGULAR INTERVALS
     Route: 065

REACTIONS (1)
  - Acute hepatic failure [Recovered/Resolved]
